FAERS Safety Report 8794825 (Version 2)
Quarter: 2015Q2

REPORT INFORMATION
  Report Type: Report from Study
  Country: US (occurrence: US)
  Receive Date: 20120917
  Receipt Date: 20150629
  Transmission Date: 20150821
  Serious: Yes (Death, Hospitalization)
  Sender: FDA-Public Use
  Company Number: US-ROCHE-1128431

PATIENT
  Sex: Male
  Weight: 147 kg

DRUGS (24)
  1. LASIX [Concomitant]
     Active Substance: FUROSEMIDE
     Route: 065
  2. PLAVIX [Concomitant]
     Active Substance: CLOPIDOGREL BISULFATE
     Route: 065
  3. ATARAX [Concomitant]
     Active Substance: HYDROXYZINE\HYDROXYZINE HYDROCHLORIDE
  4. TYLENOL #1 (UNITED STATES) [Concomitant]
     Dosage: AS REQUIRED
     Route: 065
  5. ACTIGALL [Concomitant]
     Active Substance: URSODIOL
     Route: 065
  6. ASPIRIN. [Concomitant]
     Active Substance: ASPIRIN
     Route: 065
  7. LANTUS [Concomitant]
     Active Substance: INSULIN GLARGINE
     Dosage: 30-45 UNITS AT BED TIME + 10-15 UNITS IN MORNING
     Route: 065
  8. SPIRONOLACTONE. [Concomitant]
     Active Substance: SPIRONOLACTONE
     Route: 065
  9. AVASTIN [Suspect]
     Active Substance: BEVACIZUMAB
     Route: 042
  10. ALDACTONE (UNITED STATES) [Concomitant]
     Route: 065
  11. PHENERGAN [Concomitant]
     Active Substance: PROMETHAZINE HYDROCHLORIDE
     Dosage: AS REQUIRED
     Route: 048
  12. CIPRO [Concomitant]
     Active Substance: CIPROFLOXACIN HYDROCHLORIDE
     Route: 042
  13. FENTANYL. [Concomitant]
     Active Substance: FENTANYL
     Route: 065
  14. FENTANYL. [Concomitant]
     Active Substance: FENTANYL
     Route: 042
  15. PROMETHAZINE [Concomitant]
     Active Substance: PROMETHAZINE\PROMETHAZINE HYDROCHLORIDE
     Route: 065
  16. LISINOPRIL. [Concomitant]
     Active Substance: LISINOPRIL
     Route: 065
  17. LASIX [Concomitant]
     Active Substance: FUROSEMIDE
     Route: 065
  18. ASPIRIN. [Concomitant]
     Active Substance: ASPIRIN
     Route: 065
  19. PREDNISONE. [Concomitant]
     Active Substance: PREDNISONE
     Route: 065
  20. AVASTIN [Suspect]
     Active Substance: BEVACIZUMAB
     Indication: HEPATIC CANCER
     Route: 042
  21. LASIX [Concomitant]
     Active Substance: FUROSEMIDE
     Route: 065
  22. MIDAZOLAM [Concomitant]
     Active Substance: MIDAZOLAM\MIDAZOLAM HYDROCHLORIDE
     Route: 042
  23. LISINOPRIL. [Concomitant]
     Active Substance: LISINOPRIL
     Route: 065
  24. URSODEOXYCHOLIC ACID [Concomitant]
     Active Substance: URSODIOL

REACTIONS (14)
  - Diarrhoea [Unknown]
  - Off label use [Unknown]
  - Rash [Unknown]
  - Dehydration [Unknown]
  - Jaundice cholestatic [Unknown]
  - Nausea [Unknown]
  - Vomiting [Unknown]
  - Oedema peripheral [Unknown]
  - Pruritus [Unknown]
  - Abdominal pain [Unknown]
  - Diabetes mellitus inadequate control [Unknown]
  - Weight decreased [Unknown]
  - Cough [Unknown]
  - Death [Fatal]
